FAERS Safety Report 12205127 (Version 4)
Quarter: 2016Q2

REPORT INFORMATION
  Report Type: Report from Study
  Country: US (occurrence: US)
  Receive Date: 20160323
  Receipt Date: 20160511
  Transmission Date: 20160815
  Serious: Yes (Death, Hospitalization, Other)
  Sender: FDA-Public Use
  Company Number: US-JNJFOC-20160319840

PATIENT
  Sex: Female

DRUGS (15)
  1. XANAX [Concomitant]
     Active Substance: ALPRAZOLAM
  2. ZYLOPRIM [Concomitant]
     Active Substance: ALLOPURINOL
  3. VITAMINS NOS [Concomitant]
     Active Substance: VITAMINS
  4. BREO ELLIPTA [Concomitant]
     Active Substance: FLUTICASONE FUROATE\VILANTEROL TRIFENATATE
  5. PRILOSEC [Concomitant]
     Active Substance: OMEPRAZOLE MAGNESIUM
  6. IMBRUVICA [Suspect]
     Active Substance: IBRUTINIB
     Indication: CHRONIC LYMPHOCYTIC LEUKAEMIA
     Route: 048
     Dates: start: 201408
  7. VENTOLIN HFA [Concomitant]
     Active Substance: ALBUTEROL SULFATE
  8. PULMICORT TURBUHALER [Concomitant]
     Active Substance: BUDESONIDE
  9. MYCOSTATIN [Concomitant]
     Active Substance: NYSTATIN
  10. SPIRIVA [Concomitant]
     Active Substance: TIOTROPIUM BROMIDE MONOHYDRATE
  11. VANCOMYCIN [Concomitant]
     Active Substance: VANCOMYCIN
  12. LASIX [Concomitant]
     Active Substance: FUROSEMIDE
  13. NEURONTIN [Concomitant]
     Active Substance: GABAPENTIN
  14. MEVACOR [Concomitant]
     Active Substance: LOVASTATIN
  15. GLUCOPHAGE [Concomitant]
     Active Substance: METFORMIN HYDROCHLORIDE

REACTIONS (8)
  - Oedema peripheral [Recovering/Resolving]
  - Fatigue [Not Recovered/Not Resolved]
  - Death [Fatal]
  - Chronic obstructive pulmonary disease [Unknown]
  - Hospitalisation [Not Recovered/Not Resolved]
  - Aspiration [Unknown]
  - Confusional state [Unknown]
  - Ecchymosis [Not Recovered/Not Resolved]

NARRATIVE: CASE EVENT DATE: 2016
